FAERS Safety Report 5288305-6 (Version None)
Quarter: 2007Q1

REPORT INFORMATION
  Report Type: 
  Country: None (occurrence: None)
  Receive Date: 20070330
  Receipt Date: 20070320
  Transmission Date: 20070707
  Serious: Yes (Hospitalization)
  Sender: FDA-Public Use
  Company Number: CERZ-11546

PATIENT
  Age: 44 Year
  Sex: Female
  Weight: 52 kg

DRUGS (2)
  1. CEREZYME [Suspect]
     Indication: GAUCHER'S DISEASE
     Dates: start: 20070119, end: 20070209
  2. CEREZYME [Suspect]

REACTIONS (6)
  - ARTHRALGIA [None]
  - ARTHRITIS [None]
  - EPISCLERITIS [None]
  - PAIN IN EXTREMITY [None]
  - PELVIC PAIN [None]
  - VISUAL ACUITY REDUCED [None]
